FAERS Safety Report 5614588-6 (Version None)
Quarter: 2008Q1

REPORT INFORMATION
  Report Type: 
  Country: None (occurrence: None)
  Receive Date: 20080130
  Receipt Date: 20080118
  Transmission Date: 20080703
  Serious: Yes (Hospitalization)
  Sender: FDA-Public Use
  Company Number: 230989J07USA

PATIENT
  Age: 48 Year
  Sex: Female
  Weight: 56.6996 kg

DRUGS (6)
  1. REBIF [Suspect]
     Indication: MULTIPLE SCLEROSIS
     Dosage: 44 MCG, 3 IN 1 WEEKS, SUBCUTANEOUS
     Route: 058
     Dates: start: 20070501, end: 20070701
  2. NAMENDA [Concomitant]
  3. ARICEPT [Concomitant]
  4. PROVIGIL [Concomitant]
  5. VYTORIN [Concomitant]
  6. SYNTHROID [Concomitant]

REACTIONS (11)
  - FATIGUE [None]
  - FIBROMYALGIA [None]
  - HEPATIC ENZYME INCREASED [None]
  - HYPOAESTHESIA [None]
  - INFLUENZA LIKE ILLNESS [None]
  - LIBIDO INCREASED [None]
  - MULTIPLE SCLEROSIS [None]
  - MUSCULOSKELETAL STIFFNESS [None]
  - PAIN [None]
  - PULMONARY OEDEMA [None]
  - RHEUMATOID ARTHRITIS [None]
